FAERS Safety Report 5530768-2 (Version None)
Quarter: 2007Q4

REPORT INFORMATION
  Report Type: 
  Country: None (occurrence: None)
  Receive Date: 20071130
  Receipt Date: 20071121
  Transmission Date: 20080405
  Serious: Yes (Other)
  Sender: FDA-Public Use
  Company Number: US-ROCHE-533169

PATIENT
  Age: 3 Year
  Sex: Male

DRUGS (5)
  1. VERSED [Suspect]
     Indication: EAR TUBE INSERTION
     Route: 065
  2. MORPHINE [Suspect]
     Indication: EAR TUBE INSERTION
     Route: 065
  3. ATROPINE [Suspect]
     Indication: EAR TUBE INSERTION
     Dosage: DRUG REPORTED AS 'ATERAL ATROPHINE'
     Route: 065
  4. PROMETHAZINE [Suspect]
     Indication: EAR TUBE INSERTION
     Route: 065
  5. DEMEROL [Suspect]
     Indication: EAR TUBE INSERTION
     Route: 065

REACTIONS (5)
  - BRAIN DAMAGE [None]
  - HYPERSENSITIVITY [None]
  - HYPOXIA [None]
  - OVERDOSE [None]
  - WRONG DRUG ADMINISTERED [None]
